FAERS Safety Report 8128673-0 (Version None)
Quarter: 2012Q1

REPORT INFORMATION
  Report Type: 
  Country: None (occurrence: None)
  Receive Date: 20120210
  Receipt Date: 20110824
  Transmission Date: 20120608
  Serious: Yes (Other)
  Sender: FDA-Public Use
  Company Number: US-BRISTOL-MYERS SQUIBB COMPANY-14881635

PATIENT
  Age: 76 Year
  Sex: Female
  Weight: 60 kg

DRUGS (5)
  1. CALCIUM + VITAMIN D [Concomitant]
  2. LISINOPRIL [Concomitant]
  3. NEXIUM [Concomitant]
  4. ORENCIA [Suspect]
     Indication: RHEUMATOID ARTHRITIS
     Dates: start: 20090301
  5. LORAZEPAM [Concomitant]

REACTIONS (4)
  - BONE PAIN [None]
  - ALOPECIA [None]
  - WEIGHT DECREASED [None]
  - FATIGUE [None]
